FAERS Safety Report 10511005 (Version 1)
Quarter: 2014Q4

REPORT INFORMATION
  Report Type: Spontaneous
  Country: DE (occurrence: None)
  Receive Date: 20141008
  Receipt Date: 20141008
  Transmission Date: 20150528
  Serious: Yes (Life-Threatening, Hospitalization)
  Sender: FDA-Public Use
  Company Number: DE-ALKEM-000732

PATIENT
  Age: 21 Year
  Sex: Female

DRUGS (7)
  1. GABAPENTIN (GABAPENTIN) [Suspect]
     Active Substance: GABAPENTIN
  2. AMLODIPINE [Suspect]
     Active Substance: AMLODIPINE BESYLATE
  3. KETOPROFEN (KETOPROFEN) [Suspect]
     Active Substance: KETOPROFEN
  4. NICOTINIC ACID (NICOTINIC ACID) [Suspect]
     Active Substance: NIACIN
  5. TORASEMIDE [Suspect]
     Active Substance: TORSEMIDE
  6. CARVEDILOL. [Suspect]
     Active Substance: CARVEDILOL
  7. AMITRIPTYLINE (AMITRIPTYLINE) [Suspect]
     Active Substance: AMITRIPTYLINE

REACTIONS (10)
  - Cardiac arrest [None]
  - Toxicity to various agents [None]
  - PCO2 increased [None]
  - Suicidal ideation [None]
  - Blood pH decreased [None]
  - Intentional overdose [None]
  - White blood cell count increased [None]
  - Haemoglobin decreased [None]
  - Blood glucose increased [None]
  - Aspartate aminotransferase increased [None]
